FAERS Safety Report 13100487 (Version 1)
Quarter: 2017Q1

REPORT INFORMATION
  Report Type: Spontaneous
  Country: US (occurrence: US)
  Receive Date: 20170110
  Receipt Date: 20170110
  Transmission Date: 20170428
  Serious: Yes (Death, Other)
  Sender: FDA-Public Use
  Company Number: US-AUROBINDO-AUR-APL-2016-16130

PATIENT
  Age: 80 Year
  Sex: Male

DRUGS (2)
  1. HEPARIN [Suspect]
     Active Substance: HEPARIN SODIUM
     Indication: CORONARY ARTERY OCCLUSION
     Route: 065
  2. EPTIFIBATIDE. [Suspect]
     Active Substance: EPTIFIBATIDE
     Indication: CORONARY ARTERY OCCLUSION
     Route: 065

REACTIONS (5)
  - Pulmonary haemorrhage [Fatal]
  - Mental status changes [Unknown]
  - Hypoxia [Unknown]
  - Hypotension [Unknown]
  - Cardiac arrest [Unknown]
